FAERS Safety Report 9870228 (Version 2)
Quarter: 2014Q4

REPORT INFORMATION
  Report Type: Spontaneous
  Country: US (occurrence: US)
  Receive Date: 20140205
  Receipt Date: 20141031
  Transmission Date: 20150529
  Serious: Yes (Other)
  Sender: FDA-Public Use
  Company Number: US-009507513-1402USA001260

PATIENT
  Sex: Female
  Weight: 58.96 kg

DRUGS (5)
  1. ORTHO EVRA [Concomitant]
     Active Substance: ETHINYL ESTRADIOL\NORELGESTROMIN
     Indication: CONTRACEPTION
  2. NUVARING [Suspect]
     Active Substance: ETHINYL ESTRADIOL\ETONOGESTREL
     Indication: CONTRACEPTION
     Route: 067
  3. VITAMIN D [Concomitant]
     Active Substance: CHOLECALCIFEROL
     Indication: PRODUCT USED FOR UNKNOWN INDICATION
     Dosage: 800
  4. VITAMINS (UNSPECIFIED) [Concomitant]
     Active Substance: VITAMINS
     Indication: PRODUCT USED FOR UNKNOWN INDICATION
  5. VITAMIN A [Concomitant]
     Active Substance: VITAMIN A
     Indication: PRODUCT USED FOR UNKNOWN INDICATION
     Dosage: 2500 MG, UNK

REACTIONS (13)
  - Ascites [Unknown]
  - Deep vein thrombosis [Unknown]
  - Metrorrhagia [Unknown]
  - Nervous system disorder [Not Recovered/Not Resolved]
  - Hernia repair [Unknown]
  - Musculoskeletal disorder [Not Recovered/Not Resolved]
  - Pelvic pain [Not Recovered/Not Resolved]
  - Cholecystectomy [Unknown]
  - Libido decreased [Unknown]
  - Portal vein thrombosis [Unknown]
  - Dyspareunia [Unknown]
  - Temperature intolerance [Unknown]
  - Obesity surgery [Unknown]

NARRATIVE: CASE EVENT DATE: 20050101
